FAERS Safety Report 26013968 (Version 1)
Quarter: 2025Q4

REPORT INFORMATION
  Report Type: Spontaneous
  Country: EU (occurrence: EU)
  Receive Date: 20251108
  Receipt Date: 20251108
  Transmission Date: 20260117
  Serious: Yes (Other)
  Sender: AUROBINDO
  Company Number: EU-AFSSAPS-TO2025001556

PATIENT
  Age: 53 Year
  Sex: Female
  Weight: 90 kg

DRUGS (4)
  1. ESCITALOPRAM [Suspect]
     Active Substance: ESCITALOPRAM OXALATE
     Indication: Depression
     Dosage: 1 DOSAGE FORM, ONCE A DAY
     Route: 048
     Dates: end: 20250925
  2. BISOPROLOL [Suspect]
     Active Substance: BISOPROLOL
     Indication: Hypertension
     Dosage: 1.25 MILLIGRAM, ONCE A DAY
     Route: 048
     Dates: end: 20250925
  3. KISQALI [Suspect]
     Active Substance: RIBOCICLIB SUCCINATE
     Indication: Breast cancer
     Dosage: 3 DOSAGE FORM, ONCE A DAY (3 TABLETS/DAY, TAKEN ALL AT ONCE, FOR 21 DAYS/28 DAYS)
     Route: 048
     Dates: start: 20250804
  4. TWYNSTA [Suspect]
     Active Substance: AMLODIPINE BESYLATE\TELMISARTAN
     Indication: Hypertension
     Dosage: 1.25 MILLIGRAM, ONCE A DAY
     Route: 048

REACTIONS (2)
  - Arrhythmia [Recovering/Resolving]
  - Bradycardia [Recovering/Resolving]

NARRATIVE: CASE EVENT DATE: 20250821
